FAERS Safety Report 26191819 (Version 1)
Quarter: 2025Q4

REPORT INFORMATION
  Report Type: Spontaneous
  Country: US (occurrence: US)
  Receive Date: 20251223
  Receipt Date: 20251223
  Transmission Date: 20260118
  Serious: Yes (Life-Threatening, Hospitalization)
  Sender: TEVA
  Company Number: US-TEVA-VS-3404254

PATIENT
  Age: 60 Year
  Sex: Female

DRUGS (1)
  1. ESTRADIOL [Suspect]
     Active Substance: ESTRADIOL
     Indication: Transgender hormonal therapy
     Dosage: ESTRADIOL VALERATE
     Route: 065

REACTIONS (3)
  - Cerebral infarction [Unknown]
  - Cardio-respiratory arrest [Unknown]
  - Carotid arterial embolus [Unknown]
